FAERS Safety Report 8325672-0 (Version None)
Quarter: 2012Q2

REPORT INFORMATION
  Report Type: 
  Country: None (occurrence: None)
  Receive Date: 20120501
  Receipt Date: 20120501
  Transmission Date: 20120825
  Serious: Yes (Other)
  Sender: FDA-Public Use
  Company Number: None

PATIENT
  Age: 54 Year
  Sex: Female
  Weight: 70.306 kg

DRUGS (2)
  1. LAMOTRIGINE [Concomitant]
     Indication: EPILEPSY
     Dosage: 25-50 MG
     Route: 048
     Dates: start: 20120106, end: 20120401
  2. LAMICTAL [Suspect]
     Indication: EPILEPSY
     Dosage: 25-100 MG
     Route: 048
     Dates: start: 20050310, end: 20051001

REACTIONS (2)
  - GAIT DISTURBANCE [None]
  - IMMOBILE [None]
